FAERS Safety Report 17158440 (Version 1)
Quarter: 2019Q4

REPORT INFORMATION
  Report Type: Spontaneous
  Country: US (occurrence: US)
  Receive Date: 20191213
  Receipt Date: 20191213
  Transmission Date: 20200122
  Serious: Yes (Hospitalization)
  Sender: FDA-Public Use
  Company Number: None

PATIENT
  Age: 76 Year
  Sex: Female
  Weight: 92.6 kg

DRUGS (15)
  1. GABAPENTIN 300MG TID [Concomitant]
  2. INSULIN GLARGINE 38UNITS DAILY [Concomitant]
  3. VORTIOXETINE 5MG DAILY [Concomitant]
  4. ATORVASTATIN 20MG DAILY [Concomitant]
  5. VENLAFAXINE 150MG BID [Concomitant]
  6. RIVAROXABAN [Suspect]
     Active Substance: RIVAROXABAN
     Indication: ATRIAL FIBRILLATION
     Route: 048
     Dates: start: 20151208
  7. AMIODARONE 200MG DAILY [Concomitant]
  8. DILTIAZEM 60MG TID [Concomitant]
  9. POTASSIUM 20MEQ DAILY [Concomitant]
  10. LINAGLIPTIN 5MG DAILY [Concomitant]
  11. FUROSEMIDE 80MG DAILY [Concomitant]
  12. INSULIN ASPART 3UNITS WITH MEALS [Concomitant]
  13. OMEPRAZOLE 20MG DAILY [Concomitant]
  14. LEVOTHYROXINE 50MCG DAILY [Concomitant]
  15. SPIRONOLACTONE 25MG DAILY [Concomitant]

REACTIONS (3)
  - Gastrointestinal haemorrhage [None]
  - Proctalgia [None]
  - Haematemesis [None]

NARRATIVE: CASE EVENT DATE: 20160128
